FAERS Safety Report 22138429 (Version 1)
Quarter: 2023Q1

REPORT INFORMATION
  Report Type: Spontaneous
  Country: DE (occurrence: DE)
  Receive Date: 20230326
  Receipt Date: 20230326
  Transmission Date: 20230417
  Serious: Yes (Other)
  Sender: FDA-Public Use
  Company Number: DE-TEVA-2023-DE-2868472

PATIENT
  Age: 73 Year
  Sex: Female

DRUGS (1)
  1. BISOPROLOL [Suspect]
     Active Substance: BISOPROLOL
     Indication: Hypertension
     Dosage: 1 DOSAGE FORMS DAILY;
     Route: 048
     Dates: start: 2021

REACTIONS (15)
  - Throat tightness [Recovered/Resolved]
  - Dry throat [Not Recovered/Not Resolved]
  - Dyspnoea [Recovered/Resolved]
  - Dry skin [Not Recovered/Not Resolved]
  - Alopecia [Recovered/Resolved]
  - Back pain [Recovered/Resolved]
  - Anxiety [Recovered/Resolved]
  - Hypertension [Recovered/Resolved]
  - Eye pruritus [Recovered/Resolved]
  - Nasal dryness [Recovered/Resolved]
  - Onychoclasis [Recovered/Resolved]
  - Bone pain [Not Recovered/Not Resolved]
  - Pruritus [Recovered/Resolved]
  - Nasal crusting [Recovered/Resolved]
  - Trichorrhexis [Recovered/Resolved]
